FAERS Safety Report 20954492 (Version 2)
Quarter: 2024Q3

REPORT INFORMATION
  Report Type: Spontaneous
  Country: US (occurrence: US)
  Receive Date: 20220614
  Receipt Date: 20240712
  Transmission Date: 20241017
  Serious: No
  Sender: PIERRE FABRE MEDICAMENT
  Company Number: US-PFM-2021-10669

PATIENT
  Sex: Male
  Weight: 8.508 kg

DRUGS (2)
  1. HEMANGEOL [Suspect]
     Active Substance: PROPRANOLOL HYDROCHLORIDE
     Indication: Haemangioma
     Dosage: 2 ML BY MOUTH TWICE A DAY
     Route: 048
  2. HEMANGEOL [Suspect]
     Active Substance: PROPRANOLOL HYDROCHLORIDE
     Indication: Lymphangioma

REACTIONS (4)
  - Respiration abnormal [Unknown]
  - Illness [Unknown]
  - Product use in unapproved indication [Unknown]
  - Off label use [Unknown]
